FAERS Safety Report 5821709-9 (Version None)
Quarter: 2008Q3

REPORT INFORMATION
  Report Type: 
  Country: None (occurrence: None)
  Receive Date: 20080724
  Receipt Date: 20080721
  Transmission Date: 20090109
  Serious: Yes (Other)
  Sender: FDA-Public Use
  Company Number: GB-BRISTOL-MYERS SQUIBB COMPANY-14263750

PATIENT
  Age: 60 Year
  Sex: Male

DRUGS (1)
  1. LYSODREN [Suspect]
     Indication: ADRENAL CARCINOMA
     Dates: start: 20080508

REACTIONS (5)
  - HYPOTHYROIDISM [None]
  - NEUTROPHIL COUNT DECREASED [None]
  - RASH [None]
  - RED BLOOD CELL COUNT DECREASED [None]
  - WHITE BLOOD CELL COUNT DECREASED [None]
